FAERS Safety Report 9465138 (Version 1)
Quarter: 2013Q3

REPORT INFORMATION
  Report Type: Spontaneous
  Country: US (occurrence: US)
  Receive Date: 20130819
  Receipt Date: 20130819
  Transmission Date: 20140515
  Serious: Yes (Other)
  Sender: FDA-Public Use
  Company Number: US-ELI_LILLY_AND_COMPANY-US201308003216

PATIENT
  Age: 54 Year
  Sex: Female

DRUGS (5)
  1. CYMBALTA [Suspect]
     Indication: DEPRESSION
     Dosage: 60 MG, QD
     Dates: start: 2008
  2. CYMBALTA [Suspect]
     Dosage: 30 MG, QD
  3. CYMBALTA [Suspect]
     Dosage: 20 MG, QOD
  4. CLONOPIN [Concomitant]
     Dosage: 0.5 MG, UNK
  5. ADVIL                              /00109201/ [Concomitant]
     Indication: HEADACHE
     Dosage: 2 DF, COUPLE TIMES A YEAR

REACTIONS (17)
  - Skin disorder [Unknown]
  - Skin exfoliation [Unknown]
  - Blister [Unknown]
  - Mental disorder [Unknown]
  - Pain [Unknown]
  - Asthenopia [Unknown]
  - Photopsia [Unknown]
  - Crying [Unknown]
  - Pruritus [Unknown]
  - Skin haemorrhage [Unknown]
  - Confusional state [Unknown]
  - Dermatitis contact [Unknown]
  - Paraesthesia [Unknown]
  - Dizziness [Unknown]
  - Feeling abnormal [Unknown]
  - Withdrawal syndrome [Unknown]
  - Hypersensitivity [Unknown]
